FAERS Safety Report 25037463 (Version 2)
Quarter: 2025Q1

REPORT INFORMATION
  Report Type: Report from Study
  Country: DE (occurrence: DE)
  Receive Date: 20250304
  Receipt Date: 20250319
  Transmission Date: 20250409
  Serious: Yes (Death)
  Sender: JOHNSON AND JOHNSON
  Company Number: DE-JNJFOC-20250306167

PATIENT
  Age: 9 Decade
  Sex: Female

DRUGS (4)
  1. YONDELIS [Suspect]
     Active Substance: TRABECTEDIN
     Indication: Soft tissue sarcoma
     Dosage: REPETITION OF TREATMENT: AFTER 21 DAYS. DURATION OF TREATMENT: UNTIL PROGRESSION OF DISEASE.?CYCLE 1
     Route: 065
     Dates: start: 20190628
  2. YONDELIS [Suspect]
     Active Substance: TRABECTEDIN
     Dosage: REPETITION OF TREATMENT: AFTER 21 DAYS. DURATION OF TREATMENT: UNTIL PROGRESSION OF DISEASE.?CYCLE 2
     Route: 065
     Dates: start: 20190628
  3. ZOFRAN [Concomitant]
     Active Substance: ONDANSETRON HYDROCHLORIDE
     Dates: start: 20190628
  4. DEXAMETHASONE [Concomitant]
     Active Substance: DEXAMETHASONE
     Dates: start: 20190628

REACTIONS (1)
  - Neutropenic sepsis [Fatal]

NARRATIVE: CASE EVENT DATE: 20190701
